FAERS Safety Report 8290637 (Version 4)
Quarter: 2012Q4

REPORT INFORMATION
  Report Type: 
  Country: US (occurrence: US)
  Receive Date: 20111214
  Receipt Date: 20121016
  Transmission Date: 20130627
  Serious: Yes (Hospitalization, Other)
  Sender: FDA-Public Use
  Company Number: US-PFIZER INC-2011300606

PATIENT
  Age: 1 Month
  Sex: Male
  Weight: 10.43 kg

DRUGS (4)
  1. XYNTHA [Suspect]
     Indication: FACTOR VIII DEFICIENCY
     Dosage: 250 IU, weekly as prophylaxis
     Route: 042
     Dates: start: 20100825, end: 20111024
  2. XYNTHA [Suspect]
     Dosage: 250-500 IU as needed for bleeding
     Route: 042
  3. AMICAR [Concomitant]
     Indication: HAEMORRHAGE
     Dosage: UNK
     Dates: start: 20111021
  4. HUMATE-P [Concomitant]
     Dosage: 50U/kg once
     Dates: start: 20111023, end: 20111023

REACTIONS (2)
  - Factor VIII inhibition [Not Recovered/Not Resolved]
  - Mouth haemorrhage [Unknown]
